FAERS Safety Report 21424606 (Version 1)
Quarter: 2022Q4

REPORT INFORMATION
  Report Type: Report from Study
  Country: TN (occurrence: TN)
  Receive Date: 20221007
  Receipt Date: 20221007
  Transmission Date: 20230112
  Serious: Yes (Death, Hospitalization, Other)
  Sender: FDA-Public Use
  Company Number: TN-ABBVIE-4143439

PATIENT
  Age: 43 Year
  Sex: Female

DRUGS (1)
  1. HUMIRA [Suspect]
     Active Substance: ADALIMUMAB
     Indication: Crohn^s disease
     Route: 058
     Dates: start: 20200101

REACTIONS (6)
  - Cardiac arrest [Fatal]
  - Crohn^s disease [Not Recovered/Not Resolved]
  - Hospitalisation [Unknown]
  - General physical condition abnormal [Not Recovered/Not Resolved]
  - Depression [Not Recovered/Not Resolved]
  - Ostomy bag placement [Not Recovered/Not Resolved]

NARRATIVE: CASE EVENT DATE: 20200101
